FAERS Safety Report 5401117-5 (Version None)
Quarter: 2007Q3

REPORT INFORMATION
  Report Type: 
  Country: None (occurrence: None)
  Receive Date: 20070731
  Receipt Date: 20070724
  Transmission Date: 20080115
  Serious: Yes (Life-Threatening, Hospitalization)
  Sender: FDA-Public Use
  Company Number: PHEH2007US10296

PATIENT
  Age: 51 Year
  Sex: Male
  Weight: 70.748 kg

DRUGS (9)
  1. STRATTERA [Concomitant]
  2. LAMICTAL [Suspect]
     Indication: EPILEPSY
     Dosage: 600 MG AM 400 MG PM
     Route: 048
  3. LAMICTAL [Suspect]
     Dosage: 400 MG, BID
     Route: 048
  4. TRAZODONE HCL [Suspect]
     Dosage: 300 MG, QHS
  5. RITALIN [Suspect]
     Dosage: 5 MG, BID
     Route: 048
  6. PHENOBARBITONE [Concomitant]
  7. KEPPRA [Concomitant]
     Dosage: 750 MG, BID
     Route: 048
     Dates: start: 20070519
  8. FLEXERIL [Concomitant]
  9. ZOCOR [Concomitant]

REACTIONS (4)
  - CONVULSION [None]
  - DRUG ADMINISTRATION ERROR [None]
  - ELECTROENCEPHALOGRAM ABNORMAL [None]
  - OVERDOSE [None]
